FAERS Safety Report 20711836 (Version 1)
Quarter: 2022Q2

REPORT INFORMATION
  Report Type: Spontaneous
  Country: US (occurrence: US)
  Receive Date: 20220414
  Receipt Date: 20220414
  Transmission Date: 20220721
  Serious: No
  Sender: FDA-Public Use
  Company Number: US-PFIZER INC-202101029320

PATIENT
  Age: 47 Year
  Sex: Male

DRUGS (1)
  1. CHANTIX [Suspect]
     Active Substance: VARENICLINE TARTRATE
     Dosage: UNK
     Dates: start: 2021, end: 2021

REACTIONS (6)
  - Drug ineffective [Unknown]
  - Mental disorder [Unknown]
  - Anger [Unknown]
  - Feeling abnormal [Unknown]
  - Circumstance or information capable of leading to medication error [Unknown]
  - Recalled product [Unknown]

NARRATIVE: CASE EVENT DATE: 20210101
